FAERS Safety Report 5801784-8 (Version None)
Quarter: 2008Q3

REPORT INFORMATION
  Report Type: 
  Country: None (occurrence: None)
  Receive Date: 20080703
  Receipt Date: 20080703
  Transmission Date: 20090109
  Serious: Yes (Hospitalization)
  Sender: FDA-Public Use
  Company Number: None

PATIENT
  Age: 13 Year
  Sex: Male
  Weight: 54.7 kg

DRUGS (1)
  1. OMNIPOD  INSULET CORPORATION [Suspect]
     Indication: DIABETES MELLITUS
     Dates: start: 20080629, end: 20080630

REACTIONS (6)
  - DEVICE FAILURE [None]
  - DEVICE MALFUNCTION [None]
  - DIABETIC KETOACIDOSIS [None]
  - HYPERGLYCAEMIA [None]
  - KETOACIDOSIS [None]
  - VOMITING [None]
